FAERS Safety Report 8351210-2 (Version None)
Quarter: 2012Q2

REPORT INFORMATION
  Report Type: 
  Country: None (occurrence: None)
  Receive Date: 20120510
  Receipt Date: 20120501
  Transmission Date: 20120825
  Serious: Yes (Other)
  Sender: FDA-Public Use
  Company Number: NL-MEDIMMUNE-MEDI-0014973

PATIENT
  Sex: Male
  Weight: 6.53 kg

DRUGS (2)
  1. SYNAGIS [Suspect]
     Indication: HEART DISEASE CONGENITAL
     Route: 030
     Dates: start: 20110920, end: 20120210
  2. RANITIDINE [Concomitant]

REACTIONS (5)
  - RHINORRHOEA [None]
  - HEART DISEASE CONGENITAL [None]
  - SKIN DISCOLOURATION [None]
  - TACHYPNOEA [None]
  - NASOPHARYNGITIS [None]
